FAERS Safety Report 10395765 (Version 4)
Quarter: 2015Q3

REPORT INFORMATION
  Report Type: Spontaneous
  Country: US (occurrence: US)
  Receive Date: 20140820
  Receipt Date: 20150826
  Transmission Date: 20151125
  Serious: Yes (Hospitalization, Other)
  Sender: FDA-Public Use
  Company Number: US-BAYER-2014-124092

PATIENT
  Age: 24 Year
  Sex: Female
  Weight: 63 kg

DRUGS (2)
  1. RANITIDINE [Concomitant]
     Active Substance: RANITIDINE\RANITIDINE HYDROCHLORIDE
  2. MIRENA [Suspect]
     Active Substance: LEVONORGESTREL
     Indication: CONTRACEPTION
     Dosage: 20 MCG/24HR, CONT
     Route: 015
     Dates: start: 20090218, end: 20121024

REACTIONS (8)
  - Injury [None]
  - Uterine perforation [None]
  - Abortion missed [None]
  - Pregnancy with contraceptive device [None]
  - Abdominal pain [None]
  - Procedural pain [None]
  - Off label use of device [None]
  - Gastrointestinal injury [None]

NARRATIVE: CASE EVENT DATE: 20090218
